FAERS Safety Report 21242230 (Version 1)
Quarter: 2022Q3

REPORT INFORMATION
  Report Type: Spontaneous
  Country: SA (occurrence: SA)
  Receive Date: 20220823
  Receipt Date: 20220823
  Transmission Date: 20221026
  Serious: Yes (Other)
  Sender: FDA-Public Use
  Company Number: SA-SUN PHARMACEUTICAL INDUSTRIES LTD-2022R1-348880

PATIENT
  Age: 25 Year
  Sex: Female

DRUGS (10)
  1. IRON SUCROSE [Suspect]
     Active Substance: IRON SUCROSE
     Indication: Antisynthetase syndrome
     Dosage: 200 MILLIGRAM
     Route: 042
  2. MYCOPHENOLATE MOFETIL [Suspect]
     Active Substance: MYCOPHENOLATE MOFETIL
     Indication: Antisynthetase syndrome
     Dosage: 2 GRAM
     Route: 048
  3. PREDNISOLONE [Suspect]
     Active Substance: PREDNISOLONE
     Indication: Antisynthetase syndrome
     Dosage: 25 MILLIGRAM
     Route: 048
  4. PREDNISOLONE [Suspect]
     Active Substance: PREDNISOLONE
     Dosage: 5 MILLIGRAM
     Route: 048
  5. SULFAMETHOXAZOLE\TRIMETHOPRIM [Suspect]
     Active Substance: SULFAMETHOXAZOLE\TRIMETHOPRIM
     Indication: Antisynthetase syndrome
     Dosage: 400MG/80 MG
     Route: 048
  6. AZATHIOPRINE [Suspect]
     Active Substance: AZATHIOPRINE
     Indication: Interstitial lung disease
     Route: 065
  7. AZATHIOPRINE [Suspect]
     Active Substance: AZATHIOPRINE
     Indication: Antisynthetase syndrome
  8. CALCIUM CARBONATE [Suspect]
     Active Substance: CALCIUM CARBONATE
     Indication: Antisynthetase syndrome
     Dosage: 600 MILLIGRAM, DAILY
     Route: 048
  9. FERROUS SULFATE\FOLIC ACID [Suspect]
     Active Substance: FERROUS SULFATE\FOLIC ACID
     Indication: Antisynthetase syndrome
     Route: 048
  10. RITUXIMAB [Suspect]
     Active Substance: RITUXIMAB
     Indication: Antisynthetase syndrome
     Dosage: 1 G INTRAVENOUS INFUSION EVERY 2 WEEKS FOR 1 MONTH, THEN 1 DOSE EVERY 6 MONTH
     Route: 042

REACTIONS (5)
  - Oligohydramnios [Unknown]
  - Therapeutic product effect incomplete [Unknown]
  - Foetal hypokinesia [Unknown]
  - Exposure during pregnancy [Unknown]
  - Live birth [Unknown]
